FAERS Safety Report 7488742-5 (Version None)
Quarter: 2011Q2

REPORT INFORMATION
  Report Type: 
  Country: None (occurrence: None)
  Receive Date: 20110518
  Receipt Date: 20110512
  Transmission Date: 20111010
  Serious: Yes (Other)
  Sender: FDA-Public Use
  Company Number: US-MYLANLABS-2011S1009676

PATIENT
  Age: 51 Year
  Sex: Male

DRUGS (10)
  1. CLOZAPINE [Suspect]
     Route: 048
  2. LORATADINE [Concomitant]
  3. CLOZAPINE [Suspect]
     Indication: SCHIZOPHRENIA
     Route: 048
  4. ARTANE [Concomitant]
  5. DOCUSATE SOD [Concomitant]
  6. ZOLOFT [Concomitant]
  7. OMEPRAZOLE [Concomitant]
  8. CLONAZEPAM [Concomitant]
  9. M.V.I. [Concomitant]
  10. PRAVASTATIN [Concomitant]

REACTIONS (1)
  - LUNG NEOPLASM MALIGNANT [None]
